FAERS Safety Report 9201774 (Version 1)
Quarter: 2013Q2

REPORT INFORMATION
  Report Type: Spontaneous
  Country: BR (occurrence: BR)
  Receive Date: 20130401
  Receipt Date: 20130401
  Transmission Date: 20140414
  Serious: Yes (Hospitalization, Other)
  Sender: FDA-Public Use
  Company Number: BR-ASTRAZENECA-2013SE20190

PATIENT
  Age: 1052 Month
  Sex: Male
  Weight: 73 kg

DRUGS (2)
  1. ATACAND [Suspect]
     Indication: HYPERTENSION
     Route: 048
     Dates: end: 20130321
  2. LIPITOR [Concomitant]

REACTIONS (4)
  - Arrhythmia [Recovered/Resolved]
  - Effusion [Recovered/Resolved]
  - Oedema peripheral [Recovered/Resolved]
  - Chronic obstructive pulmonary disease [Unknown]
